FAERS Safety Report 18400249 (Version 1)
Quarter: 2020Q4

REPORT INFORMATION
  Report Type: Report from Study
  Country: CA (occurrence: CA)
  Receive Date: 20201019
  Receipt Date: 20201019
  Transmission Date: 20210114
  Serious: Yes (Hospitalization)
  Sender: FDA-Public Use
  Company Number: CA-KARYOPHARM-2017KPT000372

PATIENT
  Age: 61 Year
  Sex: Male
  Weight: 68 kg

DRUGS (14)
  1. DEXAMETHASONE. [Suspect]
     Active Substance: DEXAMETHASONE
     Indication: PLASMA CELL MYELOMA
     Dosage: 20 MG, 2X/WEEK, ORAL
     Route: 048
     Dates: start: 20170310
  2. ASPIRIN. [Concomitant]
     Active Substance: ASPIRIN
     Indication: PROPHYLAXIS
     Dosage: 81 MG, UNK
     Route: 048
     Dates: start: 201011
  3. POMALIDOMIDE [Concomitant]
     Active Substance: POMALIDOMIDE
     Dosage: 3 MG, QD FOR 21 OUT OF EVERY 28 DAYS
  4. ARTIFICIAL TEARS                   /00445101/ [Concomitant]
     Indication: DRY EYE
     Dosage: 2 DROPS
     Route: 047
     Dates: start: 201210
  5. POTASSIUM [Concomitant]
     Active Substance: POTASSIUM
     Route: 042
  6. POMALIDOMIDE [Suspect]
     Active Substance: POMALIDOMIDE
     Indication: PLASMA CELL MYELOMA
     Dosage: 3 MG, QD, ORAL
     Route: 048
     Dates: start: 20170310
  7. DEXAMETHASONE. [Concomitant]
     Active Substance: DEXAMETHASONE
     Dosage: 20 MG,DAYS 1,3,8,10, 15, 17, 22 AND 24 OF A 28-DAY CYCLE
  8. MEGACE [Concomitant]
     Active Substance: MEGESTROL ACETATE
     Dosage: 40 MG, BID
  9. SELINEXOR [Suspect]
     Active Substance: SELINEXOR
     Indication: PLASMA CELL MYELOMA
     Dosage: 60 MG, 2X/WEEK
     Route: 048
     Dates: start: 20170310, end: 20170416
  10. TYLENOL [Concomitant]
     Active Substance: ACETAMINOPHEN
     Indication: BACK PAIN
     Dosage: 650 MG, PRN
     Route: 048
     Dates: start: 200405
  11. RANITIDINE. [Concomitant]
     Active Substance: RANITIDINE
     Indication: GASTROOESOPHAGEAL REFLUX DISEASE
     Dosage: 150 MG, UNK
     Route: 048
     Dates: start: 200405
  12. ONDANSETRON [Concomitant]
     Active Substance: ONDANSETRON
     Indication: PROPHYLAXIS
     Dosage: 8 MG, UNK
     Route: 048
     Dates: start: 20170310
  13. FENTANYL                           /00174602/ [Concomitant]
     Active Substance: FENTANYL
     Indication: BACK PAIN
     Dosage: 50 MCG,EVERY 48HR
     Route: 062
     Dates: start: 200405
  14. PREDNISONE. [Concomitant]
     Active Substance: PREDNISONE
     Indication: CHRONIC GRAFT VERSUS HOST DISEASE
     Dosage: 6 MG, UNK
     Route: 048
     Dates: start: 200503

REACTIONS (2)
  - Febrile neutropenia [Recovered/Resolved]
  - Delirium [Recovered/Resolved]

NARRATIVE: CASE EVENT DATE: 20170418
